FAERS Safety Report 14880762 (Version 1)
Quarter: 2018Q2

REPORT INFORMATION
  Report Type: Spontaneous
  Country: US (occurrence: US)
  Receive Date: 20180511
  Receipt Date: 20180511
  Transmission Date: 20180711
  Serious: Yes (Hospitalization)
  Sender: FDA-Public Use
  Company Number: US-CIPLA LTD.-2016US16526

PATIENT

DRUGS (3)
  1. TOPOTECAN [Suspect]
     Active Substance: TOPOTECAN HYDROCHLORIDE
     Indication: OVARIAN CANCER
     Dosage: 2.96 MG/M2, PER WEEK, FOUR CYCLES
  2. TOPOTECAN [Suspect]
     Active Substance: TOPOTECAN HYDROCHLORIDE
     Dosage: 3.94 MG/M2, PER WEEK, CYCLE 6
  3. TOPOTECAN [Suspect]
     Active Substance: TOPOTECAN HYDROCHLORIDE
     Dosage: 3.45 MG/M2, PER WEEK, CYCLE 5

REACTIONS (6)
  - Diplopia [Unknown]
  - Vision blurred [Unknown]
  - Drug dose omission [Unknown]
  - Acute febrile neutrophilic dermatosis [Recovering/Resolving]
  - Dry eye [Unknown]
  - Herpes zoster [Unknown]
